FAERS Safety Report 8697990 (Version 2)
Quarter: 2013Q4

REPORT INFORMATION
  Report Type: Spontaneous
  Country: US (occurrence: US)
  Receive Date: 20120801
  Receipt Date: 20131101
  Transmission Date: 20140711
  Serious: No
  Sender: FDA-Public Use
  Company Number: US-009507513-1207USA009863

PATIENT
  Sex: Female

DRUGS (17)
  1. ZOCOR [Suspect]
     Route: 048
  2. ATORVASTATIN CALCIUM [Suspect]
  3. MEDROL [Suspect]
     Dosage: 4 MG, UNK
  4. CORTISPORIN CREAM [Suspect]
  5. PENICILLIN G [Suspect]
  6. BACTRIM [Suspect]
  7. AMLODIPINE BESYLATE [Suspect]
  8. PROVENTIL [Concomitant]
     Dosage: UNK, PRN
  9. PROPRANOLOL HYDROCHLORIDE [Concomitant]
     Dosage: 40 MG, QID
  10. SYNTHROID [Concomitant]
     Dosage: 50 MICROGRAM, QD
     Route: 048
  11. STARLIX [Concomitant]
     Dosage: 120 MG, BID
  12. METFORMIN [Concomitant]
     Dosage: 850 MG, TID
  13. GLIMEPIRIDE [Concomitant]
     Dosage: 4 MG, TID
  14. GLYBURIDE [Concomitant]
     Dosage: 10 MG, TID
     Route: 048
  15. INSULIN [Concomitant]
     Dosage: 10 IU, TID
  16. FUROSEMIDE [Concomitant]
     Dosage: 40 MG, PRN
  17. COZAAR [Concomitant]
     Dosage: 100 MG, QD
     Route: 048

REACTIONS (5)
  - Oedema peripheral [Unknown]
  - Blood glucose increased [Unknown]
  - Pruritus generalised [Unknown]
  - Hypersensitivity [Unknown]
  - Rash [Unknown]
